FAERS Safety Report 5724810-3 (Version None)
Quarter: 2008Q2

REPORT INFORMATION
  Report Type: 
  Country: None (occurrence: None)
  Receive Date: 20080501
  Receipt Date: 20080422
  Transmission Date: 20081010
  Serious: Yes (Other)
  Sender: FDA-Public Use
  Company Number: ES-JNJFOC-20080405570

PATIENT
  Age: 4 Year
  Sex: Female

DRUGS (1)
  1. ASPIRIN [Suspect]
     Indication: JUVENILE ARTHRITIS
     Dosage: 80-100 MG/KG/DAY
     Route: 048

REACTIONS (1)
  - HEPATOTOXICITY [None]
